FAERS Safety Report 4589513-X (Version None)
Quarter: 2005Q1

REPORT INFORMATION
  Report Type: 
  Country: None (occurrence: None)
  Receive Date: 20050216
  Receipt Date: 20050203
  Transmission Date: 20050727
  Serious: Yes (Life-Threatening)
  Sender: FDA-Public Use
  Company Number: 2005026014

PATIENT
  Age: 54 Year
  Sex: Female

DRUGS (3)
  1. CARDENALIN (DOXAZOSIN) [Suspect]
     Indication: HYPERTENSION
     Dosage: 2 MG, ORAL
     Route: 048
     Dates: start: 20050101
  2. NORVASC [Suspect]
     Indication: ILL-DEFINED DISORDER
     Dosage: ORAL
     Route: 048
  3. TRIPAMIDE (TRIPAMIDE) [Suspect]
     Indication: ILL-DEFINED DISORDER
     Dosage: ORAL
     Route: 048

REACTIONS (4)
  - EPIGASTRIC DISCOMFORT [None]
  - FOREIGN BODY TRAUMA [None]
  - MEDICATION ERROR [None]
  - OESOPHAGEAL ULCER [None]
